FAERS Safety Report 16687732 (Version 1)
Quarter: 2019Q3

REPORT INFORMATION
  Report Type: Spontaneous
  Country: US (occurrence: US)
  Receive Date: 20190809
  Receipt Date: 20190809
  Transmission Date: 20191004
  Serious: Yes (Life-Threatening, Other)
  Sender: FDA-Public Use
  Company Number: US-AMERICAN REGENT INC-20191511

PATIENT
  Age: 43 Year
  Sex: Female
  Weight: 63 kg

DRUGS (4)
  1. VENOFER [Suspect]
     Active Substance: IRON SUCROSE
     Indication: PRODUCT USED FOR UNKNOWN INDICATION
     Dosage: UNK, SINGLE
     Route: 042
  2. MIRCERA [Suspect]
     Active Substance: METHOXY POLYETHYLENE GLYCOL-EPOETIN BETA
     Dosage: 200 MICROGRAM, 1 IN 2 WK
     Dates: start: 20190702, end: 20190702
  3. VENOFER [Suspect]
     Active Substance: IRON SUCROSE
     Dosage: 100 MILLIGRAM
     Dates: start: 20190702
  4. MIRCERA [Suspect]
     Active Substance: METHOXY POLYETHYLENE GLYCOL-EPOETIN BETA
     Indication: NEPHROGENIC ANAEMIA
     Dosage: 200 MCG, 1 IN 2 WK
     Dates: start: 20190530

REACTIONS (1)
  - Drug hypersensitivity [Recovered/Resolved]

NARRATIVE: CASE EVENT DATE: 20190702
